FAERS Safety Report 9246456 (Version 2)
Quarter: 2013Q4

REPORT INFORMATION
  Report Type: Spontaneous
  Country: GB (occurrence: GB)
  Receive Date: 20130422
  Receipt Date: 20131016
  Transmission Date: 20140711
  Serious: Yes (Other)
  Sender: FDA-Public Use
  Company Number: GB-WATSON-2013-06800

PATIENT
  Age: 77 Year
  Sex: Male
  Weight: 102 kg

DRUGS (6)
  1. RAMIPRIL (UNKNOWN) [Suspect]
     Indication: PRODUCT USED FOR UNKNOWN INDICATION
     Dosage: DOSE DOUBLED TO 10MG FOLLOWING TESTS.5 MG, DAILY
     Route: 048
  2. RAMIPRIL (UNKNOWN) [Suspect]
     Dosage: 10 MG, DAILY  DOSE REDUCED TO 5MG FOLLOWING A FURTHER DOCTOR VISIT.
     Route: 048
  3. RAMIPRIL (UNKNOWN) [Suspect]
     Dosage: 5 MG. DAILY
     Route: 048
  4. VIAZEM XL [Suspect]
     Indication: PRODUCT USED FOR UNKNOWN INDICATION
     Dosage: UNKNOWN
     Route: 065
  5. SYMBICORT [Concomitant]
     Indication: BRONCHIECTASIS
     Dosage: UNKNOWN
     Route: 065
  6. VENTOLIN                           /00139502/ [Concomitant]
     Indication: BRONCHIECTASIS
     Dosage: UNKNOWN
     Route: 065

REACTIONS (4)
  - Dizziness [Recovering/Resolving]
  - Muscle spasms [Recovered/Resolved]
  - Pallor [Unknown]
  - Pulse abnormal [Unknown]
